FAERS Safety Report 6106823-5 (Version None)
Quarter: 2009Q1

REPORT INFORMATION
  Report Type: 
  Country: None (occurrence: None)
  Receive Date: 20090304
  Receipt Date: 20090217
  Transmission Date: 20090719
  Serious: Yes (Hospitalization, Other)
  Sender: FDA-Public Use
  Company Number: 2009000455

PATIENT
  Age: 57 Year
  Sex: Male

DRUGS (1)
  1. TARCEVA [Suspect]
     Indication: NON-SMALL CELL LUNG CANCER
     Dosage: (150 MG, QD), ORAL
     Route: 048
     Dates: start: 20081108

REACTIONS (8)
  - ABSCESS [None]
  - EYELID PAIN [None]
  - EYELIDS PRURITUS [None]
  - FACIAL PAIN [None]
  - PRURITUS [None]
  - PYREXIA [None]
  - RASH [None]
  - RHINALGIA [None]
